FAERS Safety Report 12280849 (Version 3)
Quarter: 2022Q4

REPORT INFORMATION
  Report Type: Spontaneous
  Country: SE (occurrence: SE)
  Receive Date: 20160419
  Receipt Date: 20221004
  Transmission Date: 20230112
  Serious: Yes (Life-Threatening, Disabling, Other)
  Sender: FDA-Public Use
  Company Number: SE-AUROBINDO-AUR-APL-2016-04852

PATIENT
  Age: 33 Year
  Sex: Female

DRUGS (6)
  1. SERTRALINE HYDROCHLORIDE [Suspect]
     Active Substance: SERTRALINE HYDROCHLORIDE
     Indication: Product used for unknown indication
     Dosage: 200 MILLIGRAM, ONCE A DAY
     Route: 048
     Dates: start: 201512, end: 20160123
  2. MIRTAZAPINE [Suspect]
     Active Substance: MIRTAZAPINE
     Indication: Product used for unknown indication
     Dosage: 15 MG, UNK
     Route: 048
  3. PROMETHAZINE HYDROCHLORIDE [Suspect]
     Active Substance: PROMETHAZINE HYDROCHLORIDE
     Indication: Product used for unknown indication
     Dosage: UNK (1-2 TABLETS AS NEEDED, MAXIMUM 6 TABLETS PER DAY.)
     Route: 048
     Dates: start: 201512, end: 20160123
  4. MIRTAZAPINE [Suspect]
     Active Substance: MIRTAZAPINE
     Indication: Product used for unknown indication
     Dosage: 60 MILLIGRAM, ONCE A DAY
     Route: 048
     Dates: start: 201512, end: 20160123
  5. PROPIOMAZINE [Concomitant]
     Active Substance: PROPIOMAZINE
     Indication: Product used for unknown indication
     Dosage: UNK
     Route: 065
  6. ZOLPIDEM TARTRATE [Concomitant]
     Active Substance: ZOLPIDEM TARTRATE
     Indication: Product used for unknown indication
     Dosage: UNK
     Route: 065

REACTIONS (6)
  - Ventricular tachycardia [Recovered/Resolved with Sequelae]
  - Torsade de pointes [Recovered/Resolved with Sequelae]
  - Ventricular fibrillation [Recovered/Resolved with Sequelae]
  - Cardiac arrest [Not Recovered/Not Resolved]
  - Electrocardiogram QT prolonged [Not Recovered/Not Resolved]
  - Syncope [Not Recovered/Not Resolved]

NARRATIVE: CASE EVENT DATE: 20160122
